FAERS Safety Report 16225547 (Version 2)
Quarter: 2019Q4

REPORT INFORMATION
  Report Type: Spontaneous
  Country: US (occurrence: US)
  Receive Date: 20190422
  Receipt Date: 20191101
  Transmission Date: 20200122
  Serious: Yes (Death, Other)
  Sender: FDA-Public Use
  Company Number: US-ASTRAZENECA-2018SF66118

PATIENT
  Age: 67 Year
  Sex: Female
  Weight: 52.2 kg

DRUGS (2)
  1. PRILOSEC [Suspect]
     Active Substance: OMEPRAZOLE MAGNESIUM
     Dosage: GENERIC
     Route: 065
  2. NEXIUM [Suspect]
     Active Substance: ESOMEPRAZOLE MAGNESIUM
     Indication: GASTROOESOPHAGEAL REFLUX DISEASE
     Route: 048
     Dates: start: 2005, end: 2013

REACTIONS (9)
  - Metabolic acidosis [Fatal]
  - Staphylococcal bacteraemia [Fatal]
  - End stage renal disease [Unknown]
  - Shock [Fatal]
  - Chronic kidney disease [Not Recovered/Not Resolved]
  - Rebound acid hypersecretion [Unknown]
  - Mesenteric arterial occlusion [Fatal]
  - Renal failure [Unknown]
  - Endocarditis [Fatal]

NARRATIVE: CASE EVENT DATE: 2012
